FAERS Safety Report 7217216-1 (Version None)
Quarter: 2010Q4

REPORT INFORMATION
  Report Type: 
  Country: None (occurrence: None)
  Receive Date: 20101230
  Receipt Date: 20101216
  Transmission Date: 20110411
  Serious: Yes (Hospitalization)
  Sender: FDA-Public Use
  Company Number: 021051

PATIENT
  Age: 3 Year
  Sex: Male

DRUGS (4)
  1. KEPPRA [Suspect]
     Indication: EPILEPSY
     Dosage: (5 ML QD, ONCE-ONLY APPLICATION ORAL) ; (2 ML BID ORAL)
     Route: 048
  2. ALBUTEROL [Concomitant]
  3. ATROVENT [Concomitant]
  4. CEFPODOXIME PROXETIL [Concomitant]

REACTIONS (1)
  - FATIGUE [None]
